FAERS Safety Report 18752828 (Version 1)
Quarter: 2021Q1

REPORT INFORMATION
  Report Type: Spontaneous
  Country: CA (occurrence: CA)
  Receive Date: 20210118
  Receipt Date: 20210118
  Transmission Date: 20210419
  Serious: Yes (Other)
  Sender: FDA-Public Use
  Company Number: CA-009507513-1602CAN011784

PATIENT
  Age: 27 Year
  Sex: Female

DRUGS (4)
  1. NUVARING [Suspect]
     Active Substance: ETHINYL ESTRADIOL\ETONOGESTREL
     Indication: CONTRACEPTION
     Dosage: VAGINAL RING
     Route: 065
     Dates: start: 20140728, end: 20140817
  2. CERAZETTE (DESOGESTREL) [Suspect]
     Active Substance: DESOGESTREL
     Indication: CONTRACEPTION
     Dosage: 75 MICROGRAM, 1 EVERY 1 DAY
     Route: 048
  3. NORLEVO [Suspect]
     Active Substance: LEVONORGESTREL
     Indication: POST COITAL CONTRACEPTION
     Dosage: 1.5 MILLIGRAM, 1 EVERY 1 DAY
     Route: 048
     Dates: start: 20140728, end: 20140728
  4. CERAZETTE (DESOGESTREL) [Suspect]
     Active Substance: DESOGESTREL
     Dosage: 0.075 MICROGRAM, 1 IN 1 DAY
     Route: 048
     Dates: start: 201403, end: 20140715

REACTIONS (1)
  - Exposure during pregnancy [Unknown]

NARRATIVE: CASE EVENT DATE: 20140714
